FAERS Safety Report 13522441 (Version 2)
Quarter: 2017Q2

REPORT INFORMATION
  Report Type: Spontaneous
  Country: DE (occurrence: DE)
  Receive Date: 20170508
  Receipt Date: 20170529
  Transmission Date: 20170830
  Serious: Yes (Death, Hospitalization, Other)
  Sender: FDA-Public Use
  Company Number: DE-PFIZER INC-2017200044

PATIENT
  Age: 77 Year
  Sex: Male
  Weight: 95 kg

DRUGS (6)
  1. TORASEMIDE [Concomitant]
     Active Substance: TORSEMIDE
     Dosage: 10 MG, BID
  2. TAMIFLU [Suspect]
     Active Substance: OSELTAMIVIR PHOSPHATE
     Indication: INFLUENZA
     Dosage: 75 MG, QD
     Route: 065
  3. PANTOPRAZOLE [Suspect]
     Active Substance: PANTOPRAZOLE
     Indication: GASTRITIS
     Dosage: 40 MG, QD
     Route: 065
     Dates: start: 20170203, end: 20170212
  4. BISOPROLOL [Concomitant]
     Active Substance: BISOPROLOL
     Dosage: 2.5 MG, QD
  5. AZILECT [Concomitant]
     Active Substance: RASAGILINE MESYLATE
     Dosage: UNK, QD
  6. ACETYLSALICYLIC ACID [Concomitant]
     Active Substance: ASPIRIN
     Dosage: 100 MG, QD

REACTIONS (9)
  - Thirst [Unknown]
  - Diet refusal [Unknown]
  - Acute kidney injury [Fatal]
  - Micturition disorder [Unknown]
  - Decreased appetite [Unknown]
  - Lividity [Unknown]
  - Back pain [Unknown]
  - Nausea [Unknown]
  - Vomiting [Unknown]

NARRATIVE: CASE EVENT DATE: 20170213
